FAERS Safety Report 5190707-3 (Version None)
Quarter: 2006Q4

REPORT INFORMATION
  Report Type: 
  Country: None (occurrence: None)
  Receive Date: 20061218
  Receipt Date: 20061205
  Transmission Date: 20070319
  Serious: Yes (Hospitalization)
  Sender: FDA-Public Use
  Company Number: 2006AL003794

PATIENT
  Age: 71 Year
  Sex: Female

DRUGS (2)
  1. PAREGORIC LIQUID USP (ALPHARMA) [Suspect]
     Indication: PLEURITIC PAIN
     Dosage: 120 MG; QD; PO
     Route: 048
  2. FENTANYL TRANSDERMAL SYSTEM [Concomitant]

REACTIONS (3)
  - FLUSHING [None]
  - INFUSION SITE ERYTHEMA [None]
  - PRURITUS [None]
